FAERS Safety Report 5982476-1 (Version None)
Quarter: 2008Q4

REPORT INFORMATION
  Report Type: 
  Country: None (occurrence: None)
  Receive Date: 20081208
  Receipt Date: 20081203
  Transmission Date: 20090506
  Serious: Yes (Hospitalization)
  Sender: FDA-Public Use
  Company Number: US-BRISTOL-MYERS SQUIBB COMPANY-14429500

PATIENT
  Sex: Male

DRUGS (2)
  1. ABILIFY [Suspect]
     Indication: DEPRESSION
  2. HALDOL [Suspect]

REACTIONS (3)
  - ABNORMAL BEHAVIOUR [None]
  - HALLUCINATION, AUDITORY [None]
  - MYOCARDIAL INFARCTION [None]
